FAERS Safety Report 7946565-4 (Version None)
Quarter: 2011Q4

REPORT INFORMATION
  Report Type: 
  Country: None (occurrence: None)
  Receive Date: 20111129
  Receipt Date: 20111114
  Transmission Date: 20120403
  Serious: Yes (Death, Other)
  Sender: FDA-Public Use
  Company Number: US-WATSON-2011-19352

PATIENT
  Age: 60 Year
  Sex: Male

DRUGS (1)
  1. PREDNISONE TAB [Suspect]
     Indication: SARCOIDOSIS
     Dosage: 60 MG, DAILY
     Route: 065

REACTIONS (4)
  - EYE INFECTION BACTERIAL [None]
  - NOCARDIOSIS [None]
  - ABSCESS [None]
  - NOCARDIA TEST POSITIVE [None]
